FAERS Safety Report 6757689-1 (Version None)
Quarter: 2010Q2

REPORT INFORMATION
  Report Type: 
  Country: None (occurrence: None)
  Receive Date: 20100604
  Receipt Date: 20100604
  Transmission Date: 20101027
  Serious: Yes (Hospitalization)
  Sender: FDA-Public Use
  Company Number: None

PATIENT
  Sex: Female
  Weight: 85.9 kg

DRUGS (3)
  1. ZOMETA [Suspect]
     Dosage: 4 MG
  2. DEXAMETHASONE [Concomitant]
  3. REVLIMID [Concomitant]

REACTIONS (4)
  - BLOOD GLUCOSE INCREASED [None]
  - CHOLELITHIASIS [None]
  - DRUG TOXICITY [None]
  - HEPATIC NECROSIS [None]
